FAERS Safety Report 9896824 (Version 2)
Quarter: 2014Q2

REPORT INFORMATION
  Report Type: Spontaneous
  Country: JP (occurrence: JP)
  Receive Date: 20140213
  Receipt Date: 20140411
  Transmission Date: 20141212
  Serious: Yes (Life-Threatening, Other)
  Sender: FDA-Public Use
  Company Number: JP-AMGEN-JPNSP2014010318

PATIENT
  Age: 45 Year
  Sex: Female
  Weight: 53 kg

DRUGS (5)
  1. ENBREL [Suspect]
     Indication: PSORIASIS
     Dosage: 25 MG, 2X/WEEK
     Route: 058
     Dates: start: 20060829, end: 20140214
  2. RHEUMATREX                         /00113801/ [Suspect]
     Indication: PSORIASIS
     Dosage: 4 MG, 2X/WEEK
     Route: 048
     Dates: start: 200603, end: 20140308
  3. CELECOX [Concomitant]
     Indication: PSORIASIS
     Dosage: 200 MG, 2X/DAY
     Route: 048
     Dates: start: 200603
  4. TAKEPRON [Concomitant]
     Indication: PROPHYLAXIS
     Dosage: 30 MG, 1X/DAY
     Route: 048
     Dates: start: 200603
  5. VITAMEDIN                          /00274301/ [Concomitant]
     Indication: STOMATITIS
     Dosage: 1 DF, 3X/DAY
     Route: 048
     Dates: start: 200603

REACTIONS (2)
  - Female genital tract fistula [Unknown]
  - Crohn^s disease [Not Recovered/Not Resolved]
